FAERS Safety Report 17829779 (Version 2)
Quarter: 2020Q2

REPORT INFORMATION
  Report Type: Spontaneous
  Country: BR (occurrence: BR)
  Receive Date: 20200527
  Receipt Date: 20200529
  Transmission Date: 20200714
  Serious: Yes (Death, Other)
  Sender: FDA-Public Use
  Company Number: BR-PFIZER INC-2020204711

PATIENT
  Age: 85 Year
  Sex: Female
  Weight: 54.7 kg

DRUGS (15)
  1. POTASSIUM CLORIDE 40 [Concomitant]
     Active Substance: POTASSIUM CHLORIDE
     Dosage: 20 ML CONTINOUS INFUSION
     Route: 042
     Dates: start: 20191206, end: 20200104
  2. ZOLTEC [Concomitant]
     Active Substance: FLUCONAZOLE
     Dosage: 200 MG, 2X/DAY
     Route: 042
     Dates: start: 20191230, end: 20200102
  3. AMICACINA [AMIKACIN SULFATE] [Concomitant]
     Dosage: 300 MG, 2X/DAY
     Route: 042
     Dates: start: 20200101, end: 20200107
  4. CLEXANE [Suspect]
     Active Substance: ENOXAPARIN SODIUM
     Dosage: 60 MG, 2X/DAY
     Route: 058
     Dates: start: 20191216, end: 20200106
  5. DIGOXIN. [Concomitant]
     Active Substance: DIGOXIN
     Dosage: 0.25 MG, 1X/DAY
     Route: 006
     Dates: start: 20191230, end: 20200107
  6. EBIX [Concomitant]
     Active Substance: MEMANTINE HYDROCHLORIDE
     Dosage: 20 MG, 1X/DAY
     Route: 006
     Dates: start: 20191204, end: 20200107
  7. LYRICA [Concomitant]
     Active Substance: PREGABALIN
     Dosage: 75 MG, 1X/DAY
     Route: 006
     Dates: start: 20191204, end: 20200102
  8. LASIX [Concomitant]
     Active Substance: FUROSEMIDE
     Dosage: 40 MG, 2X/DAY
     Route: 006
     Dates: start: 20191205, end: 20200108
  9. NEXIUM I.V. [Concomitant]
     Active Substance: ESOMEPRAZOLE SODIUM
     Dosage: 20 MG, 1X/DAY
     Route: 006
     Dates: start: 20191208, end: 20200108
  10. LINEZOLIDA [Suspect]
     Active Substance: LINEZOLID
     Indication: SEPSIS
     Dosage: 600 MG, 2X/DAY
     Route: 042
     Dates: start: 20191231, end: 20200106
  11. SODIUM CHLORIDE. [Concomitant]
     Active Substance: SODIUM CHLORIDE
     Dosage: 400 ML CONTINOUS INFUSION
     Route: 042
     Dates: start: 20191203, end: 20200104
  12. FLUIMUCIL [Concomitant]
     Active Substance: ACETYLCYSTEINE
     Dosage: 600 MG, 1X/DAY
     Route: 006
     Dates: start: 20191211, end: 20200107
  13. NOREPINEFRINA [NOREPINEPHRINE] [Concomitant]
     Dosage: 16 MG INFUSION BOMB
     Route: 042
     Dates: start: 20191204, end: 20200108
  14. MERONEM [Concomitant]
     Active Substance: MEROPENEM
     Dosage: 1 G, EVERY 8 HOURS
     Route: 042
     Dates: start: 20191204, end: 20200108
  15. FLORINEFE [Concomitant]
     Dosage: 0.1 MG, 2X/DAY
     Route: 006
     Dates: start: 20191231, end: 20200107

REACTIONS (2)
  - Drug ineffective [Fatal]
  - Thrombocytopenia [Unknown]

NARRATIVE: CASE EVENT DATE: 20200102
